FAERS Safety Report 7058019-0 (Version None)
Quarter: 2010Q4

REPORT INFORMATION
  Report Type: 
  Country: None (occurrence: None)
  Receive Date: 20101022
  Receipt Date: 20101019
  Transmission Date: 20110411
  Serious: Yes (Death)
  Sender: FDA-Public Use
  Company Number: PHHY2010NL59094

PATIENT
  Age: 81 Year
  Sex: Male

DRUGS (1)
  1. TOBI [Suspect]

REACTIONS (1)
  - MYOCARDIAL INFARCTION [None]
